FAERS Safety Report 4989981-5 (Version None)
Quarter: 2006Q2

REPORT INFORMATION
  Report Type: 
  Country: None (occurrence: None)
  Receive Date: 20060428
  Receipt Date: 20060421
  Transmission Date: 20061013
  Serious: Yes (Life-Threatening, Other)
  Sender: FDA-Public Use
  Company Number: 200610427GDS

PATIENT
  Age: 85 Year
  Sex: Female

DRUGS (7)
  1. AVELOX [Suspect]
     Indication: PNEUMONIA
     Dosage: 400 MG ONCE INTRAVENOUS
     Route: 042
     Dates: start: 20051113
  2. ASPIRIN [Concomitant]
  3. FOLATE [Concomitant]
  4. FUROSEMIDE [Concomitant]
  5. MULTIVITE [Concomitant]
  6. SPIRONOLACTONE [Concomitant]
  7. THIAMINE [Concomitant]

REACTIONS (3)
  - ELECTROCARDIOGRAM QT PROLONGED [None]
  - HYPOKALAEMIA [None]
  - HYPOMAGNESAEMIA [None]
